FAERS Safety Report 5911865-6 (Version None)
Quarter: 2008Q4

REPORT INFORMATION
  Report Type: 
  Country: None (occurrence: None)
  Receive Date: 20081006
  Receipt Date: 20080918
  Transmission Date: 20090506
  Serious: Yes (Life-Threatening, Hospitalization, Other)
  Sender: FDA-Public Use
  Company Number: ADE2008-0319

PATIENT
  Age: 66 Year
  Sex: Female

DRUGS (5)
  1. SIMVASTATIN [Suspect]
     Indication: HYPERCHOLESTEROLAEMIA
     Dosage: 10 MG - DAILY - PO
     Route: 048
     Dates: start: 19980612, end: 20080702
  2. LEVOTHYROXINE SODIUM [Concomitant]
  3. PRIMIDONE [Concomitant]
  4. RAMIPRIL [Concomitant]
  5. TOPIRAMATE [Concomitant]

REACTIONS (7)
  - ANGIOPATHY [None]
  - CEREBRAL ISCHAEMIA [None]
  - HYPERSENSITIVITY [None]
  - MYOSITIS [None]
  - OEDEMA PERIPHERAL [None]
  - PNEUMONITIS [None]
  - WEIGHT DECREASED [None]
